FAERS Safety Report 25923892 (Version 1)
Quarter: 2025Q4

REPORT INFORMATION
  Report Type: Spontaneous
  Country: GB (occurrence: GB)
  Receive Date: 20251015
  Receipt Date: 20251015
  Transmission Date: 20260117
  Serious: Yes (Other)
  Sender: CHEPLAPHARM
  Company Number: GB-CHEPLA-1500066426

PATIENT
  Sex: Male

DRUGS (1)
  1. OLANZAPINE [Suspect]
     Active Substance: OLANZAPINE
     Dates: start: 1996, end: 2025

REACTIONS (5)
  - Impaired gastric emptying [Unknown]
  - Type 2 diabetes mellitus [Unknown]
  - Eye swelling [Unknown]
  - Nerve injury [Unknown]
  - Eye haemorrhage [Unknown]

NARRATIVE: CASE EVENT DATE: 20060101
